FAERS Safety Report 6226015-9 (Version None)
Quarter: 2009Q2

REPORT INFORMATION
  Report Type: 
  Country: None (occurrence: None)
  Receive Date: 20090612
  Receipt Date: 20090603
  Transmission Date: 20091009
  Serious: Yes (Hospitalization)
  Sender: FDA-Public Use
  Company Number: FR-TEVA-173714ISR

PATIENT
  Age: 86 Year
  Sex: Female

DRUGS (2)
  1. WARFARIN SODIUM [Suspect]
     Indication: CEREBROVASCULAR ACCIDENT PROPHYLAXIS
  2. WARFARIN SODIUM [Suspect]
     Indication: EMBOLISM

REACTIONS (1)
  - ACUTE PULMONARY OEDEMA [None]
